FAERS Safety Report 17511903 (Version 1)
Quarter: 2020Q1

REPORT INFORMATION
  Report Type: Spontaneous
  Country: FR (occurrence: FR)
  Receive Date: 20200308
  Receipt Date: 20200308
  Transmission Date: 20200409
  Serious: Yes (Death, Life-Threatening)
  Sender: FDA-Public Use
  Company Number: NVSC2020FR065378

PATIENT
  Age: 60 Year
  Sex: Male

DRUGS (1)
  1. METFORMIN [Suspect]
     Active Substance: METFORMIN HYDROCHLORIDE
     Indication: DIABETES MELLITUS
     Dosage: 800 MG
     Route: 048
     Dates: end: 20170917

REACTIONS (1)
  - Metabolic acidosis [Fatal]

NARRATIVE: CASE EVENT DATE: 20170917
